FAERS Safety Report 9061424 (Version 2)
Quarter: 2013Q1

REPORT INFORMATION
  Report Type: Spontaneous
  Country: US (occurrence: US)
  Receive Date: 20130204
  Receipt Date: 20130327
  Transmission Date: 20140127
  Serious: Yes (Hospitalization, Other)
  Sender: FDA-Public Use
  Company Number: US-JNJFOC-20121213402

PATIENT
  Sex: Female
  Weight: 83.92 kg

DRUGS (9)
  1. LEVAQUIN [Suspect]
     Indication: BRONCHITIS
     Route: 042
     Dates: start: 20121214, end: 20121217
  2. LEVAQUIN [Suspect]
     Indication: BRONCHITIS
     Route: 048
     Dates: start: 20121218, end: 20121221
  3. LEVAQUIN [Suspect]
     Indication: BRONCHITIS
     Route: 048
     Dates: start: 20121214, end: 20121215
  4. PREDNISONE [Suspect]
     Indication: PRODUCT USED FOR UNKNOWN INDICATION
     Route: 065
     Dates: start: 201212, end: 201301
  5. PRILOSEC [Concomitant]
     Indication: BARRETT^S OESOPHAGUS
     Route: 048
  6. MOBIC [Concomitant]
     Indication: INFLAMMATION
     Route: 048
  7. MOBIC [Concomitant]
     Indication: ARTHRITIS
     Route: 048
  8. LEXAPRO [Concomitant]
     Route: 065
  9. ZYRTEC [Concomitant]
     Indication: MULTIPLE ALLERGIES
     Route: 065

REACTIONS (8)
  - Adverse event [Unknown]
  - Pain [Not Recovered/Not Resolved]
  - Burning sensation [Recovering/Resolving]
  - Gait disturbance [Not Recovered/Not Resolved]
  - Paraesthesia [Unknown]
  - Impaired work ability [Not Recovered/Not Resolved]
  - Hypoaesthesia [Not Recovered/Not Resolved]
  - Asthenia [Not Recovered/Not Resolved]
